FAERS Safety Report 22682961 (Version 3)
Quarter: 2025Q2

REPORT INFORMATION
  Report Type: Spontaneous
  Country: JP (occurrence: JP)
  Receive Date: 20230707
  Receipt Date: 20250418
  Transmission Date: 20250716
  Serious: Yes (Death, Hospitalization)
  Sender: EAGLE
  Company Number: A202300383-001

PATIENT
  Sex: Male

DRUGS (19)
  1. BENDAMUSTINE HYDROCHLORIDE [Suspect]
     Active Substance: BENDAMUSTINE HYDROCHLORIDE
     Indication: Follicular lymphoma
     Route: 042
  2. BENDAMUSTINE HYDROCHLORIDE [Suspect]
     Active Substance: BENDAMUSTINE HYDROCHLORIDE
     Route: 042
  3. BENDAMUSTINE HYDROCHLORIDE [Suspect]
     Active Substance: BENDAMUSTINE HYDROCHLORIDE
     Route: 042
  4. BENDAMUSTINE HYDROCHLORIDE [Suspect]
     Active Substance: BENDAMUSTINE HYDROCHLORIDE
     Route: 042
  5. BENDAMUSTINE HYDROCHLORIDE [Suspect]
     Active Substance: BENDAMUSTINE HYDROCHLORIDE
     Route: 042
  6. BENDAMUSTINE HYDROCHLORIDE [Suspect]
     Active Substance: BENDAMUSTINE HYDROCHLORIDE
     Route: 042
  7. GAZYVA [Suspect]
     Active Substance: OBINUTUZUMAB
     Indication: Follicular lymphoma
     Route: 042
  8. GAZYVA [Suspect]
     Active Substance: OBINUTUZUMAB
     Route: 042
  9. GAZYVA [Suspect]
     Active Substance: OBINUTUZUMAB
     Route: 042
  10. GAZYVA [Suspect]
     Active Substance: OBINUTUZUMAB
     Route: 042
  11. GAZYVA [Suspect]
     Active Substance: OBINUTUZUMAB
     Route: 042
  12. GAZYVA [Suspect]
     Active Substance: OBINUTUZUMAB
     Route: 042
  13. GAZYVA [Suspect]
     Active Substance: OBINUTUZUMAB
     Route: 042
  14. GAZYVA [Suspect]
     Active Substance: OBINUTUZUMAB
     Route: 042
  15. GAZYVA [Suspect]
     Active Substance: OBINUTUZUMAB
     Route: 042
  16. GAZYVA [Suspect]
     Active Substance: OBINUTUZUMAB
     Route: 042
  17. GAZYVA [Suspect]
     Active Substance: OBINUTUZUMAB
     Route: 042
  18. GAZYVA [Suspect]
     Active Substance: OBINUTUZUMAB
     Route: 042
  19. GAZYVA [Suspect]
     Active Substance: OBINUTUZUMAB
     Route: 042

REACTIONS (3)
  - COVID-19 [Fatal]
  - Human herpesvirus 6 infection [Not Recovered/Not Resolved]
  - Cytomegalovirus infection [Not Recovered/Not Resolved]

NARRATIVE: CASE EVENT DATE: 20210121
